FAERS Safety Report 13487031 (Version 2)
Quarter: 2017Q3

REPORT INFORMATION
  Report Type: Spontaneous
  Country: BR (occurrence: BR)
  Receive Date: 20170426
  Receipt Date: 20170908
  Transmission Date: 20171127
  Serious: Yes (Hospitalization)
  Sender: FDA-Public Use
  Company Number: BR-JNJFOC-20170424434

PATIENT
  Sex: Female

DRUGS (1)
  1. XARELTO [Suspect]
     Active Substance: RIVAROXABAN
     Indication: ORTHOPAEDIC PROCEDURE
     Route: 048
     Dates: start: 20170307, end: 20170307

REACTIONS (4)
  - Disseminated intravascular coagulation [Recovered/Resolved]
  - Blood disorder [Recovered/Resolved]
  - Thrombosis [Recovered/Resolved]
  - Haematoma infection [Recovered/Resolved]

NARRATIVE: CASE EVENT DATE: 20170307
